FAERS Safety Report 10257559 (Version 2)
Quarter: 2014Q3

REPORT INFORMATION
  Report Type: Spontaneous
  Country: FR (occurrence: FR)
  Receive Date: 20140625
  Receipt Date: 20140917
  Transmission Date: 20150326
  Serious: Yes (Hospitalization)
  Sender: FDA-Public Use
  Company Number: PHHY2014FR076748

PATIENT
  Age: 78 Year
  Sex: Male

DRUGS (13)
  1. TRILEPTAL [Suspect]
     Active Substance: OXCARBAZEPINE
     Dosage: 600 MG, BID (AT MORNING AND AT EVENING)
     Route: 048
     Dates: start: 20140309
  2. OXYCONTIN [Suspect]
     Active Substance: OXYCODONE HYDROCHLORIDE
     Dosage: 20 MG, QD (AT EVENING)
     Route: 048
     Dates: start: 20140308, end: 20140316
  3. SOLUPRED [Concomitant]
     Active Substance: PREDNISOLONE
     Dosage: 20 MG, TID
     Route: 048
     Dates: start: 20140313
  4. OXYCONTIN [Suspect]
     Active Substance: OXYCODONE HYDROCHLORIDE
     Indication: TRIGEMINAL NEURALGIA
     Dosage: 10 MG, QD (AT MORNING)
     Route: 048
     Dates: start: 20140306
  5. SOLUPRED [Concomitant]
     Active Substance: PREDNISOLONE
     Dosage: 10 MG, BID
     Route: 048
     Dates: start: 20140320
  6. METHYLPREDNISOLONE [Concomitant]
     Active Substance: METHYLPREDNISOLONE
     Dosage: 4 MG/KG
  7. ISOPTIN [Concomitant]
     Active Substance: VERAPAMIL HYDROCHLORIDE
     Dosage: 240 MG, QD (AT MIDDAY)
     Route: 048
  8. TRILEPTAL [Suspect]
     Active Substance: OXCARBAZEPINE
     Dosage: 450 MG, BID (AT MORNING AND AT EVENING)
     Route: 048
     Dates: start: 20140308, end: 20140308
  9. TRILEPTAL [Suspect]
     Active Substance: OXCARBAZEPINE
     Dosage: UNK UKN, UNK (DOSE DECREASED)
     Route: 048
  10. IRBESARTAN. [Concomitant]
     Active Substance: IRBESARTAN
     Dosage: 75 MG, QD (AT MORNING)
     Route: 048
  11. RIVOTRIL [Concomitant]
     Active Substance: CLONAZEPAM
     Indication: PAIN
     Dosage: 5 DRP, QD
     Route: 048
     Dates: start: 20140306, end: 20140321
  12. FLUDEX [Suspect]
     Active Substance: INDAPAMIDE
     Dosage: 1.5 MG, BID (1.5 MG TWO TABLETS PER DAY IN THE MORNING)
     Route: 048
  13. TRILEPTAL [Suspect]
     Active Substance: OXCARBAZEPINE
     Indication: TRIGEMINAL NEURALGIA
     Dosage: 300 MG, BID (1 TABLET AT MORNING AND 1 TABLET AT EVENING)
     Route: 048
     Dates: start: 20140306, end: 20140307

REACTIONS (3)
  - Urinary retention [Recovered/Resolved]
  - Subileus [Recovered/Resolved]
  - Hyponatraemia [Recovered/Resolved]

NARRATIVE: CASE EVENT DATE: 20140316
